FAERS Safety Report 18079279 (Version 1)
Quarter: 2020Q3

REPORT INFORMATION
  Report Type: Spontaneous
  Country: FR (occurrence: FR)
  Receive Date: 20200728
  Receipt Date: 20200728
  Transmission Date: 20201103
  Serious: Yes (Hospitalization)
  Sender: FDA-Public Use
  Company Number: FR-SUN PHARMACEUTICAL INDUSTRIES LTD-2020RR-255513

PATIENT
  Age: 36 Year
  Sex: Female

DRUGS (14)
  1. TRANXENE [Suspect]
     Active Substance: CLORAZEPATE DIPOTASSIUM
     Indication: POISONING DELIBERATE
     Dosage: IN TOTAL
     Route: 048
     Dates: start: 20140207, end: 20140207
  2. ESOMEPRAZOLE. [Suspect]
     Active Substance: ESOMEPRAZOLE MAGNESIUM
     Indication: POISONING DELIBERATE
     Dosage: IN TOTAL
     Route: 048
     Dates: start: 20140207, end: 20140207
  3. TRIMEBUTINE [Suspect]
     Active Substance: TRIMEBUTINE
     Indication: POISONING DELIBERATE
     Dosage: IN TOTAL
     Route: 048
     Dates: start: 20140207, end: 20140207
  4. ANTARENE CODEINE [Suspect]
     Active Substance: CODEINE PHOSPHATE\IBUPROFEN
     Indication: POISONING DELIBERATE
     Dosage: IN TOTAL
     Route: 048
     Dates: start: 20140207, end: 20140207
  5. DEPAKOTE [Suspect]
     Active Substance: DIVALPROEX SODIUM
     Indication: POISONING DELIBERATE
     Dosage: IN TOTAL
     Route: 048
     Dates: start: 20140207, end: 20140207
  6. ABILIFY [Suspect]
     Active Substance: ARIPIPRAZOLE
     Indication: POISONING DELIBERATE
     Dosage: IN TOTAL
     Route: 048
     Dates: start: 20140207, end: 20140207
  7. DIPIPERON 40 MG, COMPRIME SECABLE [Suspect]
     Active Substance: PIPAMPERONE HYDROCHLORIDE
     Indication: POISONING DELIBERATE
     Dosage: IN TOTAL
     Route: 048
     Dates: start: 20140207, end: 20140207
  8. LEVOTHYROX 75 MICROGRAMMES, COMPRIME SECABLE [Suspect]
     Active Substance: LEVOTHYROXINE SODIUM
     Indication: POISONING DELIBERATE
     Dosage: IN TOTAL
     Route: 048
     Dates: start: 20140207, end: 20140207
  9. FLUOXETINE [Suspect]
     Active Substance: FLUOXETINE HYDROCHLORIDE
     Indication: POISONING DELIBERATE
     Dosage: IN TOTAL
     Route: 048
     Dates: start: 20140207, end: 20140207
  10. VENLAFAXINE [Suspect]
     Active Substance: VENLAFAXINE HYDROCHLORIDE
     Indication: POISONING DELIBERATE
     Dosage: IN TOTAL
     Route: 048
     Dates: start: 20140207, end: 20140207
  11. CYMBALTA [Suspect]
     Active Substance: DULOXETINE HYDROCHLORIDE
     Indication: POISONING DELIBERATE
     Dosage: IN TOTAL
     Route: 048
     Dates: start: 20140207, end: 20140207
  12. SERESTA 50 MG, COMPRIME SECABLE [Suspect]
     Active Substance: OXAZEPAM
     Indication: PRODUCT USED FOR UNKNOWN INDICATION
     Dosage: IN TOTAL
     Route: 048
     Dates: start: 20140207, end: 20140207
  13. DOLIPRANE [Suspect]
     Active Substance: ACETAMINOPHEN
     Indication: POISONING DELIBERATE
     Dosage: IN TOTAL
     Route: 048
     Dates: start: 20140207, end: 20140207
  14. HAVLANE, COMPRIME SECABLE [Suspect]
     Active Substance: LOPRAZOLAM MESILATE
     Indication: POISONING DELIBERATE
     Dosage: IN TOTAL
     Route: 048
     Dates: start: 20140207, end: 20140207

REACTIONS (1)
  - Coma [Recovered/Resolved]

NARRATIVE: CASE EVENT DATE: 20140207
